FAERS Safety Report 7501186-2 (Version None)
Quarter: 2011Q2

REPORT INFORMATION
  Report Type: 
  Country: None (occurrence: None)
  Receive Date: 20110524
  Receipt Date: 20100713
  Transmission Date: 20111010
  Serious: No
  Sender: FDA-Public Use
  Company Number: US-NOVEN-ALL1-2010-03516

PATIENT

DRUGS (5)
  1. DAYTRANA [Suspect]
     Dosage: 15 MG, 1X/DAY:QD
     Route: 062
     Dates: start: 20100401, end: 20100101
  2. RISPERDAL [Concomitant]
     Dosage: 1 MG, 1X/DAY:QD (AT NIGHT)
     Route: 048
  3. BENADRYL [Concomitant]
     Dosage: UNK, 1X/DAY:QD (AT NIGHT)
     Route: 048
  4. DAYTRANA [Suspect]
     Dosage: 10 MG, 1X/DAY:QD
     Route: 062
     Dates: start: 20100301, end: 20100401
  5. DAYTRANA [Suspect]
     Dosage: 20 MG, 1X/DAY:QD
     Route: 062
     Dates: start: 20100101

REACTIONS (5)
  - APPLICATION SITE URTICARIA [None]
  - APPLICATION SITE PRURITUS [None]
  - APPLICATION SITE VESICLES [None]
  - APPLICATION SITE ERYTHEMA [None]
  - PYREXIA [None]
